FAERS Safety Report 4835203-5 (Version None)
Quarter: 2005Q4

REPORT INFORMATION
  Report Type: 
  Country: None (occurrence: None)
  Receive Date: 20051114
  Receipt Date: 20051104
  Transmission Date: 20060501
  Serious: Yes (Other)
  Sender: FDA-Public Use
  Company Number: 2005-11-0250

PATIENT
  Sex: Male

DRUGS (4)
  1. PROVENTIL [Suspect]
     Dosage: INHALATION
  2. ALBUTEROL [Suspect]
     Dosage: ORAL AER INH
     Route: 055
  3. ASPIRIN [Concomitant]
  4. TEGRETOL [Concomitant]

REACTIONS (5)
  - DEVICE MALFUNCTION [None]
  - DIZZINESS [None]
  - EXTRASYSTOLES [None]
  - MALAISE [None]
  - PHARMACEUTICAL PRODUCT COMPLAINT [None]
